FAERS Safety Report 4377935-1 (Version None)
Quarter: 2004Q2

REPORT INFORMATION
  Report Type: 
  Country: None (occurrence: None)
  Receive Date: 20040616
  Receipt Date: 20040610
  Transmission Date: 20050107
  Serious: Yes (Other)
  Sender: FDA-Public Use
  Company Number: 200414530US

PATIENT
  Sex: Female

DRUGS (5)
  1. ARAVA [Suspect]
     Indication: RHEUMATOID ARTHRITIS
     Dosage: DOSE: UNK
     Dates: end: 20040520
  2. PREDNISONE [Concomitant]
     Dosage: DOSE: UNK
  3. REMICADE [Concomitant]
     Dosage: DOSE: UNK
  4. FOSAMAX [Concomitant]
     Dosage: DOSE: UNK
  5. CALCIUM [Concomitant]
     Dosage: DOSE: UNK

REACTIONS (5)
  - ABORTION [None]
  - DRUG EXPOSURE DURING PREGNANCY [None]
  - METRORRHAGIA [None]
  - MUSCLE CRAMP [None]
  - PREGNANCY [None]
